FAERS Safety Report 19862393 (Version 1)
Quarter: 2021Q3

REPORT INFORMATION
  Report Type: Spontaneous
  Country: KR (occurrence: KR)
  Receive Date: 20210921
  Receipt Date: 20210921
  Transmission Date: 20211014
  Serious: Yes (Hospitalization, Other)
  Sender: FDA-Public Use
  Company Number: KR-PFIZER INC-202101207051

PATIENT
  Age: 59 Year
  Sex: Male

DRUGS (8)
  1. SIROLIMUS. [Suspect]
     Active Substance: SIROLIMUS
     Indication: IMMUNOSUPPRESSANT DRUG THERAPY
     Dosage: 6 MG/DAY
  2. OXYGEN. [Concomitant]
     Active Substance: OXYGEN
     Dosage: 2 L/MIN (DAY 0)
     Route: 055
  3. PREDNISOLONE. [Concomitant]
     Active Substance: PREDNISOLONE
     Indication: IMMUNOSUPPRESSANT DRUG THERAPY
     Dosage: 5 MG/DAY
  4. OXYGEN. [Concomitant]
     Active Substance: OXYGEN
     Dosage: 4 L/MIN (DAY2)
     Route: 055
  5. OXYGEN. [Concomitant]
     Active Substance: OXYGEN
     Dosage: 2 L/MIN (DAY 5)
     Route: 055
  6. OXYGEN. [Concomitant]
     Active Substance: OXYGEN
     Dosage: 1 L/MIN (DAY 6)
     Route: 055
  7. CEFTRIAXONE. [Concomitant]
     Active Substance: CEFTRIAXONE
     Indication: ANTIBIOTIC PROPHYLAXIS
     Dosage: 2 G DAILY
  8. LOPINAVIR/RITONAVIR [Interacting]
     Active Substance: LOPINAVIR\RITONAVIR
     Indication: COVID-19 PNEUMONIA
     Dosage: 400 MG/100 MG DAILY

REACTIONS (2)
  - Drug interaction [Unknown]
  - Drug-induced liver injury [Recovered/Resolved]
